FAERS Safety Report 14897144 (Version 1)
Quarter: 2018Q2

REPORT INFORMATION
  Report Type: Spontaneous
  Country: US (occurrence: US)
  Receive Date: 20180515
  Receipt Date: 20180515
  Transmission Date: 20180711
  Serious: Yes (Hospitalization)
  Sender: FDA-Public Use
  Company Number: US-NEOS THERAPEUTICS, LP-2018NEO00062

PATIENT
  Age: 15 Year
  Sex: Male

DRUGS (1)
  1. METHYLPHENIDATE. [Suspect]
     Active Substance: METHYLPHENIDATE
     Dosage: UNKNOWN AMOUNTS OF 5 MG IR AND 36 MG ER
     Route: 048

REACTIONS (3)
  - Toxicity to various agents [Recovered/Resolved]
  - Suicide attempt [Recovered/Resolved]
  - Overdose [Recovered/Resolved]
